FAERS Safety Report 6736047-X (Version None)
Quarter: 2010Q2

REPORT INFORMATION
  Report Type: 
  Country: None (occurrence: None)
  Receive Date: 20100521
  Receipt Date: 20100513
  Transmission Date: 20101027
  Serious: Yes (Other)
  Sender: FDA-Public Use
  Company Number: TR-BAYER-201025599GPV

PATIENT

DRUGS (1)
  1. MOXIFLOXACIN [Suspect]
     Indication: DRUG USE FOR UNKNOWN INDICATION
     Route: 065

REACTIONS (2)
  - INTRAOCULAR PRESSURE INCREASED [None]
  - UVEITIS [None]
